FAERS Safety Report 19934549 (Version 3)
Quarter: 2021Q4

REPORT INFORMATION
  Report Type: Spontaneous
  Country: RO (occurrence: RO)
  Receive Date: 20211008
  Receipt Date: 20211101
  Transmission Date: 20220303
  Serious: Yes (Other)
  Sender: FDA-Public Use
  Company Number: RO-BAYER-2021A224469

PATIENT

DRUGS (3)
  1. EYLEA [Suspect]
     Active Substance: AFLIBERCEPT
     Indication: Age-related macular degeneration
     Dosage: FIRST INJECTION
     Route: 031
     Dates: start: 20210514, end: 20210514
  2. EYLEA [Suspect]
     Active Substance: AFLIBERCEPT
     Dosage: SECOND INJECTION
     Dates: start: 20210618, end: 20210618
  3. EYLEA [Suspect]
     Active Substance: AFLIBERCEPT
     Dosage: UNK, THIRD DOSE RECEIVED
     Route: 031
     Dates: start: 202107, end: 202107

REACTIONS (2)
  - Retinal haemorrhage [Recovering/Resolving]
  - Visual impairment [Not Recovered/Not Resolved]

NARRATIVE: CASE EVENT DATE: 20210801
